FAERS Safety Report 6068475-2 (Version None)
Quarter: 2009Q1

REPORT INFORMATION
  Report Type: 
  Country: None (occurrence: None)
  Receive Date: 20090206
  Receipt Date: 20090128
  Transmission Date: 20090719
  Serious: Yes (Disabling)
  Sender: FDA-Public Use
  Company Number: GB-PFIZER INC-2009161366

PATIENT

DRUGS (2)
  1. PREGABALIN [Suspect]
     Indication: EPILEPSY
     Dosage: 150 MG, 2X/DAY
     Route: 048
     Dates: start: 20070601, end: 20080901
  2. ZONISAMIDE [Concomitant]
     Dosage: UNK
     Dates: end: 20080201

REACTIONS (3)
  - PAIN [None]
  - PANIC REACTION [None]
  - PHOTOSENSITIVITY REACTION [None]
